FAERS Safety Report 20714538 (Version 4)
Quarter: 2024Q2

REPORT INFORMATION
  Report Type: Other
  Country: JP (occurrence: JP)
  Receive Date: 20220415
  Receipt Date: 20240611
  Transmission Date: 20240716
  Serious: Yes (Hospitalization)
  Sender: FDA-Public Use
  Company Number: JP-CHUGAI-2022013342

PATIENT
  Age: 61 Year
  Sex: Female
  Weight: 50 kg

DRUGS (7)
  1. ENSPRYNG [Suspect]
     Active Substance: SATRALIZUMAB-MWGE
     Indication: Neuromyelitis optica spectrum disorder
     Route: 058
     Dates: start: 20210525, end: 20210608
  2. ENSPRYNG [Suspect]
     Active Substance: SATRALIZUMAB-MWGE
     Route: 058
     Dates: start: 20210629, end: 20210921
  3. ENSPRYNG [Suspect]
     Active Substance: SATRALIZUMAB-MWGE
     Route: 058
     Dates: start: 20211026, end: 20211026
  4. ENSPRYNG [Suspect]
     Active Substance: SATRALIZUMAB-MWGE
     Route: 058
     Dates: start: 20221110, end: 20221208
  5. ENSPRYNG [Suspect]
     Active Substance: SATRALIZUMAB-MWGE
     Route: 058
     Dates: start: 20230330
  6. PREDNISOLONE [Concomitant]
     Active Substance: PREDNISOLONE
     Indication: Neuromyelitis optica spectrum disorder
     Dosage: 20MG/DAY
     Route: 048
     Dates: start: 20210306
  7. PREDNISOLONE [Concomitant]
     Active Substance: PREDNISOLONE
     Dosage: 15MG/DAY
     Route: 048

REACTIONS (2)
  - Cerebral infarction [Recovered/Resolved with Sequelae]
  - Cholangitis [Recovered/Resolved]

NARRATIVE: CASE EVENT DATE: 20220321
